FAERS Safety Report 25612794 (Version 1)
Quarter: 2025Q3

REPORT INFORMATION
  Report Type: Spontaneous
  Country: EU (occurrence: EU)
  Receive Date: 20250728
  Receipt Date: 20250728
  Transmission Date: 20251021
  Serious: Yes (Death, Other)
  Sender: MYLAN
  Company Number: EU-BRISTOL-MYERS SQUIBB COMPANY-2025-094683

PATIENT
  Age: 37 Year
  Sex: Female

DRUGS (56)
  1. CELECOXIB [Suspect]
     Active Substance: CELECOXIB
     Indication: Medulloblastoma recurrent
     Dosage: 800 MILLIGRAM, QD (400 MILLIGRAM X 2, BID)
  2. CELECOXIB [Suspect]
     Active Substance: CELECOXIB
     Dosage: 800 MILLIGRAM, QD (400 MILLIGRAM X 2, BID)
     Route: 048
  3. CELECOXIB [Suspect]
     Active Substance: CELECOXIB
     Dosage: 800 MILLIGRAM, QD (400 MILLIGRAM X 2, BID)
     Route: 048
  4. CELECOXIB [Suspect]
     Active Substance: CELECOXIB
     Dosage: 800 MILLIGRAM, QD (400 MILLIGRAM X 2, BID)
  5. CYTARABINE [Suspect]
     Active Substance: CYTARABINE
     Indication: Medulloblastoma
  6. CYTARABINE [Suspect]
     Active Substance: CYTARABINE
     Route: 042
  7. CYTARABINE [Suspect]
     Active Substance: CYTARABINE
     Route: 042
  8. CYTARABINE [Suspect]
     Active Substance: CYTARABINE
  9. FENOFIBRATE [Suspect]
     Active Substance: FENOFIBRATE
     Indication: Medulloblastoma recurrent
     Dosage: 90 MILLIGRAM/SQ. METER, QD
  10. FENOFIBRATE [Suspect]
     Active Substance: FENOFIBRATE
     Dosage: 90 MILLIGRAM/SQ. METER, QD
     Route: 048
  11. FENOFIBRATE [Suspect]
     Active Substance: FENOFIBRATE
     Dosage: 90 MILLIGRAM/SQ. METER, QD
     Route: 048
  12. FENOFIBRATE [Suspect]
     Active Substance: FENOFIBRATE
     Dosage: 90 MILLIGRAM/SQ. METER, QD
  13. ETOPOSIDE [Suspect]
     Active Substance: ETOPOSIDE
     Indication: Medulloblastoma recurrent
  14. ETOPOSIDE [Suspect]
     Active Substance: ETOPOSIDE
     Route: 065
  15. ETOPOSIDE [Suspect]
     Active Substance: ETOPOSIDE
     Route: 065
  16. ETOPOSIDE [Suspect]
     Active Substance: ETOPOSIDE
  17. ETOPOSIDE [Suspect]
     Active Substance: ETOPOSIDE
  18. ETOPOSIDE [Suspect]
     Active Substance: ETOPOSIDE
     Route: 042
  19. ETOPOSIDE [Suspect]
     Active Substance: ETOPOSIDE
  20. ETOPOSIDE [Suspect]
     Active Substance: ETOPOSIDE
     Route: 042
  21. ETOPOSIDE [Suspect]
     Active Substance: ETOPOSIDE
     Dosage: 1 DOSAGE FORM, QD (FOR 3 DAYS OF EACH 28-DAY CYCLE)
     Route: 042
  22. ETOPOSIDE [Suspect]
     Active Substance: ETOPOSIDE
     Dosage: 1 DOSAGE FORM, QD (FOR 3 DAYS OF EACH 28-DAY CYCLE)
     Route: 042
  23. ETOPOSIDE [Suspect]
     Active Substance: ETOPOSIDE
     Dosage: 1 DOSAGE FORM, QD (FOR 3 DAYS OF EACH 28-DAY CYCLE)
  24. ETOPOSIDE [Suspect]
     Active Substance: ETOPOSIDE
     Dosage: 1 DOSAGE FORM, QD (FOR 3 DAYS OF EACH 28-DAY CYCLE)
  25. THALIDOMIDE [Suspect]
     Active Substance: THALIDOMIDE
     Indication: Medulloblastoma recurrent
     Dosage: 3 MILLIGRAM/KILOGRAM, QD
  26. THALIDOMIDE [Suspect]
     Active Substance: THALIDOMIDE
     Dosage: 3 MILLIGRAM/KILOGRAM, QD
     Route: 048
  27. THALIDOMIDE [Suspect]
     Active Substance: THALIDOMIDE
     Dosage: 3 MILLIGRAM/KILOGRAM, QD
     Route: 048
  28. THALIDOMIDE [Suspect]
     Active Substance: THALIDOMIDE
     Dosage: 3 MILLIGRAM/KILOGRAM, QD
  29. CYCLOPHOSPHAMIDE [Suspect]
     Active Substance: CYCLOPHOSPHAMIDE
     Indication: Medulloblastoma recurrent
  30. CYCLOPHOSPHAMIDE [Suspect]
     Active Substance: CYCLOPHOSPHAMIDE
     Route: 048
  31. CYCLOPHOSPHAMIDE [Suspect]
     Active Substance: CYCLOPHOSPHAMIDE
     Route: 048
  32. CYCLOPHOSPHAMIDE [Suspect]
     Active Substance: CYCLOPHOSPHAMIDE
  33. BEVACIZUMAB [Suspect]
     Active Substance: BEVACIZUMAB
     Indication: Medulloblastoma recurrent
     Dosage: 10 MILLIGRAM/KILOGRAM, Q2W
  34. BEVACIZUMAB [Suspect]
     Active Substance: BEVACIZUMAB
     Dosage: 10 MILLIGRAM/KILOGRAM, Q2W
     Route: 042
  35. BEVACIZUMAB [Suspect]
     Active Substance: BEVACIZUMAB
     Dosage: 10 MILLIGRAM/KILOGRAM, Q2W
     Route: 042
  36. BEVACIZUMAB [Suspect]
     Active Substance: BEVACIZUMAB
     Dosage: 10 MILLIGRAM/KILOGRAM, Q2W
  37. ETOPOSIDE [Suspect]
     Active Substance: ETOPOSIDE
     Indication: Medulloblastoma recurrent
  38. ETOPOSIDE [Suspect]
     Active Substance: ETOPOSIDE
     Route: 048
  39. ETOPOSIDE [Suspect]
     Active Substance: ETOPOSIDE
     Route: 048
  40. ETOPOSIDE [Suspect]
     Active Substance: ETOPOSIDE
  41. CARBOPLATIN [Concomitant]
     Active Substance: CARBOPLATIN
     Indication: Medulloblastoma
  42. CARBOPLATIN [Concomitant]
     Active Substance: CARBOPLATIN
     Route: 065
  43. CARBOPLATIN [Concomitant]
     Active Substance: CARBOPLATIN
     Route: 065
  44. CARBOPLATIN [Concomitant]
     Active Substance: CARBOPLATIN
  45. TOPOTECAN [Concomitant]
     Active Substance: TOPOTECAN HYDROCHLORIDE
     Indication: Medulloblastoma
  46. TOPOTECAN [Concomitant]
     Active Substance: TOPOTECAN HYDROCHLORIDE
     Route: 065
  47. TOPOTECAN [Concomitant]
     Active Substance: TOPOTECAN HYDROCHLORIDE
     Route: 065
  48. TOPOTECAN [Concomitant]
     Active Substance: TOPOTECAN HYDROCHLORIDE
  49. TEMOZOLOMIDE [Concomitant]
     Active Substance: TEMOZOLOMIDE
     Indication: Medulloblastoma
  50. TEMOZOLOMIDE [Concomitant]
     Active Substance: TEMOZOLOMIDE
     Route: 065
  51. TEMOZOLOMIDE [Concomitant]
     Active Substance: TEMOZOLOMIDE
     Route: 065
  52. TEMOZOLOMIDE [Concomitant]
     Active Substance: TEMOZOLOMIDE
  53. SULFAMETHOXAZOLE\TRIMETHOPRIM [Concomitant]
     Active Substance: SULFAMETHOXAZOLE\TRIMETHOPRIM
     Indication: Prophylaxis
  54. SULFAMETHOXAZOLE\TRIMETHOPRIM [Concomitant]
     Active Substance: SULFAMETHOXAZOLE\TRIMETHOPRIM
     Route: 065
  55. SULFAMETHOXAZOLE\TRIMETHOPRIM [Concomitant]
     Active Substance: SULFAMETHOXAZOLE\TRIMETHOPRIM
     Route: 065
  56. SULFAMETHOXAZOLE\TRIMETHOPRIM [Concomitant]
     Active Substance: SULFAMETHOXAZOLE\TRIMETHOPRIM

REACTIONS (8)
  - Medulloblastoma recurrent [Fatal]
  - Neurotoxicity [Unknown]
  - Arachnoiditis [Unknown]
  - Asthenia [Unknown]
  - Oesophageal candidiasis [Unknown]
  - Lymphopenia [Unknown]
  - Neutropenia [Unknown]
  - Off label use [Unknown]
